FAERS Safety Report 21387748 (Version 1)
Quarter: 2022Q3

REPORT INFORMATION
  Report Type: Spontaneous
  Country: US (occurrence: US)
  Receive Date: 20220928
  Receipt Date: 20220928
  Transmission Date: 20221027
  Serious: Yes (Other)
  Sender: FDA-Public Use
  Company Number: US-FreseniusKabi-FK202212862

PATIENT
  Age: 79 Year
  Sex: Male

DRUGS (1)
  1. HEPARIN SODIUM\SODIUM CHLORIDE [Suspect]
     Active Substance: HEPARIN SODIUM\SODIUM CHLORIDE
     Indication: Product used for unknown indication
     Dates: start: 20220218

REACTIONS (1)
  - Heparin-induced thrombocytopenia [Unknown]
